FAERS Safety Report 9048524 (Version 1)
Quarter: 2013Q1

REPORT INFORMATION
  Report Type: Spontaneous
  Country: US (occurrence: None)
  Receive Date: 20130130
  Receipt Date: 20130130
  Transmission Date: 20140127
  Serious: Yes (Other)
  Sender: FDA-Public Use
  Company Number: None

PATIENT
  Age: 70 Year
  Sex: Male
  Weight: 125.1 kg

DRUGS (14)
  1. METHADONE [Suspect]
     Indication: BACK PAIN
     Dosage: NOON?CHRONIC
     Route: 048
  2. METHADONE [Suspect]
     Indication: BACK PAIN
     Route: 048
  3. FLOMAX [Concomitant]
  4. FLOMAX [Concomitant]
  5. PROAIR [Concomitant]
  6. OXMETAZOLONE [Concomitant]
  7. LANSOPRAZOLE [Concomitant]
  8. OMEGA 3 [Concomitant]
  9. POLYETHYLNE GLYCOL [Concomitant]
  10. ASA [Concomitant]
  11. GABAPENTIN [Concomitant]
  12. NTG [Concomitant]
  13. NIACIN [Concomitant]
  14. RAMIPRIL [Concomitant]

REACTIONS (6)
  - Overdose [None]
  - Delirium [None]
  - Encephalopathy [None]
  - Disorientation [None]
  - Asthenia [None]
  - Mental status changes [None]
